FAERS Safety Report 25571118 (Version 1)
Quarter: 2025Q3

REPORT INFORMATION
  Report Type: Spontaneous
  Country: CA (occurrence: CA)
  Receive Date: 20250717
  Receipt Date: 20250717
  Transmission Date: 20251020
  Serious: Yes (Hospitalization)
  Sender: ACCORD
  Company Number: None

PATIENT
  Age: 73 Year
  Sex: Male
  Weight: 75 kg

DRUGS (13)
  1. CARBOPLATIN [Suspect]
     Active Substance: CARBOPLATIN
     Indication: Lung neoplasm malignant
     Route: 042
  2. BISOPROLOL [Concomitant]
     Active Substance: BISOPROLOL
     Route: 065
  3. CALCIUM [Concomitant]
     Active Substance: CALCIUM
  4. DEXAMETHASONE [Concomitant]
     Active Substance: DEXAMETHASONE
  5. FOLIC ACID [Concomitant]
     Active Substance: FOLIC ACID
  6. PEMBROLIZUMAB [Concomitant]
     Active Substance: PEMBROLIZUMAB
  7. MORPHINE [Concomitant]
     Active Substance: MORPHINE
  8. ONDANSETRON [Concomitant]
     Active Substance: ONDANSETRON
  9. PEMETREXED [Concomitant]
     Active Substance: PEMETREXED
  10. TAMSULOSIN [Concomitant]
     Active Substance: TAMSULOSIN
  11. TINZAPARIN SODIUM [Concomitant]
     Active Substance: TINZAPARIN SODIUM
  12. VITAMIN B12 [Concomitant]
     Active Substance: CYANOCOBALAMIN
  13. VITAMIN D [Concomitant]
     Active Substance: VITAMIN D NOS

REACTIONS (3)
  - Cardiac failure [Recovering/Resolving]
  - Dyspnoea [Recovering/Resolving]
  - Acute kidney injury [Recovering/Resolving]
